FAERS Safety Report 7721575-0 (Version None)
Quarter: 2011Q3

REPORT INFORMATION
  Report Type: 
  Country: None (occurrence: None)
  Receive Date: 20110831
  Receipt Date: 20110823
  Transmission Date: 20111222
  Serious: Yes (Other)
  Sender: FDA-Public Use
  Company Number: AU-B.I. PHARMACEUTICALS,INC./RIDGEFIELD-2011-AU-00773AU

PATIENT
  Sex: Female

DRUGS (12)
  1. PRADAXA [Suspect]
     Dates: start: 20110717
  2. FLECAINIDE ACETATE [Suspect]
     Indication: ATRIAL FIBRILLATION
     Dosage: 200 MG
     Dates: end: 20110719
  3. FUROSEMIDE [Concomitant]
  4. GABAPENTIN [Concomitant]
  5. SLOW-K [Concomitant]
     Dosage: 600MG X2
  6. FOSAMAX [Concomitant]
  7. PANTOPRAZOLE [Concomitant]
  8. CALCIUM CARBONATE [Concomitant]
  9. LEVOTHYROXINE SODIUM [Concomitant]
     Dosage: 50 MCG
  10. ALLOPURINOL [Concomitant]
  11. SILDENAFIL CITRATE [Concomitant]
  12. MAGMIN [Concomitant]

REACTIONS (2)
  - VENTRICULAR TACHYCARDIA [None]
  - HYPOTENSION [None]
